FAERS Safety Report 8618962-5 (Version None)
Quarter: 2012Q3

REPORT INFORMATION
  Report Type: 
  Country: None (occurrence: None)
  Receive Date: 20120824
  Receipt Date: 20120816
  Transmission Date: 20120928
  Serious: Yes (Other)
  Sender: FDA-Public Use
  Company Number: PHHY2012BR071163

PATIENT
  Sex: Female

DRUGS (2)
  1. FORMOTEROL FUMARATE [Suspect]
  2. ONBREZ [Suspect]
     Indication: ASTHMA
     Dosage: 150 UG, (2 CAPSULES AT A TIME)

REACTIONS (3)
  - GASTROOESOPHAGEAL REFLUX DISEASE [None]
  - COUGH [None]
  - HIATUS HERNIA [None]
